FAERS Safety Report 9001180 (Version 1)
Quarter: 2013Q1

REPORT INFORMATION
  Report Type: Spontaneous
  Country: US (occurrence: US)
  Receive Date: 20130107
  Receipt Date: 20130107
  Transmission Date: 20140127
  Serious: Yes (Disabling, Other)
  Sender: FDA-Public Use
  Company Number: PHEH2012US023028

PATIENT
  Age: 54 None
  Sex: Male
  Weight: 78.91 kg

DRUGS (2)
  1. AFINITOR [Suspect]
     Indication: PANCREATIC NEUROENDOCRINE TUMOUR METASTATIC
     Dosage: 10 MG, DAILY
     Route: 048
     Dates: start: 20121009
  2. AFINITOR [Suspect]
     Dosage: 5 MG, QD

REACTIONS (12)
  - Mucous membrane disorder [Not Recovered/Not Resolved]
  - Vertigo [Not Recovered/Not Resolved]
  - Nausea [Not Recovered/Not Resolved]
  - Vomiting [Not Recovered/Not Resolved]
  - Blood glucose abnormal [Recovering/Resolving]
  - Hair colour changes [Unknown]
  - Dry skin [Unknown]
  - Acne [Unknown]
  - Dysgeusia [Unknown]
  - Diarrhoea [Unknown]
  - Pruritus [Unknown]
  - Sedation [Unknown]
